FAERS Safety Report 8849203 (Version 2)
Quarter: 2012Q4

REPORT INFORMATION
  Report Type: 
  Country: US (occurrence: None)
  Receive Date: 20121019
  Receipt Date: 20121214
  Transmission Date: 20130627
  Serious: Yes (Disabling)
  Sender: FDA-Public Use
  Company Number: None

PATIENT
  Age: 53 Year
  Sex: Male
  Weight: 81.65 kg

DRUGS (3)
  1. METHYLPREDNISOLONE [Suspect]
     Indication: EYE OPERATION
     Dates: start: 20120614, end: 20120615
  2. VANCOMYCIN [Suspect]
  3. CEFOTAN [Suspect]

REACTIONS (3)
  - Eye infection [None]
  - Product quality issue [None]
  - Blindness [None]
